FAERS Safety Report 16363139 (Version 1)
Quarter: 2019Q2

REPORT INFORMATION
  Report Type: Spontaneous
  Country: FR (occurrence: FR)
  Receive Date: 20190528
  Receipt Date: 20190528
  Transmission Date: 20190711
  Serious: Yes (Disabling)
  Sender: FDA-Public Use
  Company Number: FR-ROCHE-2326901

PATIENT
  Age: 2 Year
  Sex: Female
  Weight: 15 kg

DRUGS (4)
  1. GARDENAL [PHENOBARBITAL] [Suspect]
     Active Substance: PHENOBARBITAL
     Indication: FEBRILE CONVULSION
     Route: 048
     Dates: start: 198803, end: 198811
  2. ALEPSAL [PHENOBARBITAL] [Suspect]
     Active Substance: PHENOBARBITAL
     Indication: FEBRILE CONVULSION
     Route: 048
     Dates: start: 199006, end: 199010
  3. DEPAKINE [VALPROIC ACID] [Suspect]
     Active Substance: VALPROIC ACID
     Indication: FEBRILE CONVULSION
     Route: 048
     Dates: start: 198811, end: 199006
  4. VALIUM [Suspect]
     Active Substance: DIAZEPAM
     Indication: FEBRILE CONVULSION
     Route: 054
     Dates: start: 198712, end: 1993

REACTIONS (1)
  - Neurodevelopmental disorder [Recovered/Resolved with Sequelae]

NARRATIVE: CASE EVENT DATE: 1990
